FAERS Safety Report 9773281 (Version 4)
Quarter: 2014Q1

REPORT INFORMATION
  Report Type: Spontaneous
  Country: JP (occurrence: JP)
  Receive Date: 20131219
  Receipt Date: 20140205
  Transmission Date: 20141002
  Serious: Yes (Disabling)
  Sender: FDA-Public Use
  Company Number: JP-GLAXOSMITHKLINE-B0954277A

PATIENT
  Age: 73 Year
  Sex: Female

DRUGS (8)
  1. LAMICTAL [Suspect]
     Indication: DELUSIONAL DISORDER, UNSPECIFIED TYPE
     Route: 048
     Dates: start: 20131006
  2. LAMICTAL [Suspect]
     Indication: DELUSIONAL DISORDER, UNSPECIFIED TYPE
     Dosage: 50MG PER DAY
     Route: 048
     Dates: start: 20131116
  3. LAMICTAL [Suspect]
     Indication: DELUSIONAL DISORDER, UNSPECIFIED TYPE
     Dosage: 75MG PER DAY
     Route: 048
     Dates: start: 20131121, end: 20131207
  4. ZYPREXA [Concomitant]
     Dosage: 2.5MG PER DAY
     Route: 048
  5. FLUNITRAZEPAM [Concomitant]
     Dosage: 2MG PER DAY
     Route: 048
  6. BEZAFIBRATE [Concomitant]
     Dosage: 200MG PER DAY
     Route: 048
  7. MAGMITT [Concomitant]
     Dosage: 330MG TWICE PER DAY
     Route: 048
  8. BONOTEO [Concomitant]
     Dosage: 50MG PER DAY
     Route: 048

REACTIONS (6)
  - Pneumonia aspiration [Recovering/Resolving]
  - Hypotonia [Not Recovered/Not Resolved]
  - Pharyngitis [Unknown]
  - Pyrexia [Unknown]
  - Chest discomfort [Unknown]
  - Dysphagia [Unknown]
